FAERS Safety Report 16563893 (Version 1)
Quarter: 2019Q3

REPORT INFORMATION
  Report Type: Spontaneous
  Country: RU (occurrence: RU)
  Receive Date: 20190712
  Receipt Date: 20190712
  Transmission Date: 20191004
  Serious: Yes (Death, Other)
  Sender: FDA-Public Use
  Company Number: RU-ADIENNEP-2019AD000345

PATIENT
  Age: 44 Year
  Sex: Female
  Weight: 90 kg

DRUGS (2)
  1. MYLERAN [Suspect]
     Active Substance: BUSULFAN
     Indication: ALLOGENIC STEM CELL TRANSPLANTATION
     Dosage: 280 MG DAILY
     Route: 042
     Dates: start: 20190214, end: 20190215
  2. TEPADINA [Suspect]
     Active Substance: THIOTEPA
     Indication: ALLOGENIC STEM CELL TRANSPLANTATION
     Dosage: 435 MG DAILY
     Dates: start: 20190214, end: 20190215

REACTIONS (1)
  - Hepatic vein occlusion [Fatal]

NARRATIVE: CASE EVENT DATE: 20190301
